FAERS Safety Report 11536199 (Version 1)
Quarter: 2015Q3

REPORT INFORMATION
  Report Type: Spontaneous
  Country: US (occurrence: None)
  Receive Date: 20150921
  Receipt Date: 20150921
  Transmission Date: 20151125
  Serious: Yes (Other)
  Sender: FDA-Public Use
  Company Number: None

PATIENT
  Age: 77 Year
  Sex: Female
  Weight: 79.38 kg

DRUGS (1)
  1. ALENDRONATE SODIUM. [Suspect]
     Active Substance: ALENDRONATE SODIUM
     Indication: OSTEOPOROSIS
     Route: 048
     Dates: start: 20150912

REACTIONS (5)
  - Myalgia [None]
  - Product substitution issue [None]
  - White blood cell count increased [None]
  - Arthralgia [None]
  - Red blood cell sedimentation rate increased [None]

NARRATIVE: CASE EVENT DATE: 20150912
